FAERS Safety Report 10065207 (Version 1)
Quarter: 2014Q1

REPORT INFORMATION
  Report Type: Spontaneous
  Country: US (occurrence: None)
  Receive Date: 20140328
  Receipt Date: 20140328
  Transmission Date: 20141002
  Serious: No
  Sender: FDA-Public Use
  Company Number: CABO-13003829

PATIENT
  Age: 51 Year
  Sex: Female

DRUGS (2)
  1. COMETRIQ [Suspect]
     Indication: THYROID CANCER
     Route: 048
     Dates: start: 20131004, end: 20140114
  2. NITRODERM (GLYCERYL TRINITRATE) [Concomitant]

REACTIONS (1)
  - Skin toxicity [None]
